FAERS Safety Report 5589716-1 (Version None)
Quarter: 2008Q1

REPORT INFORMATION
  Report Type: 
  Country: None (occurrence: None)
  Receive Date: 20080114
  Receipt Date: 20080107
  Transmission Date: 20080703
  Serious: Yes (Hospitalization)
  Sender: FDA-Public Use
  Company Number: B0501392A

PATIENT
  Age: 74 Year
  Sex: Male
  Weight: 100 kg

DRUGS (6)
  1. ARIXTRA [Suspect]
     Indication: THROMBOSIS PROPHYLAXIS
     Dosage: 10MG PER DAY
     Route: 058
     Dates: start: 20071110, end: 20071123
  2. SINTROM [Suspect]
     Indication: THROMBOSIS PROPHYLAXIS
     Dosage: 4MG PER DAY
     Route: 048
     Dates: start: 20071110
  3. CLAMOXYL [Concomitant]
     Indication: BACTERAEMIA
     Route: 048
     Dates: start: 20071120, end: 20071120
  4. INEXIUM [Concomitant]
     Indication: DRUG USE FOR UNKNOWN INDICATION
     Route: 048
     Dates: start: 20071120, end: 20071126
  5. ZECLAR [Concomitant]
     Indication: BACTERAEMIA
     Route: 048
     Dates: start: 20071120, end: 20071130
  6. LIPANTHYL [Concomitant]

REACTIONS (6)
  - BACTERAEMIA [None]
  - GAIT DISTURBANCE [None]
  - HAEMATOMA [None]
  - OEDEMA PERIPHERAL [None]
  - PAIN IN EXTREMITY [None]
  - PYREXIA [None]
